FAERS Safety Report 14532036 (Version 1)
Quarter: 2018Q1

REPORT INFORMATION
  Report Type: Report from Study
  Country: BR (occurrence: BR)
  Receive Date: 20180214
  Receipt Date: 20180214
  Transmission Date: 20180509
  Serious: Yes (Other)
  Sender: FDA-Public Use
  Company Number: BR-MYLANLABS-2018M1009846

PATIENT
  Age: 10 Year
  Sex: Male

DRUGS (7)
  1. REMICADE [Suspect]
     Active Substance: INFLIXIMAB
     Indication: BLAU SYNDROME
     Dosage: UNK
     Route: 065
  2. TRIAMCINOLONE [Suspect]
     Active Substance: TRIAMCINOLONE
     Indication: BLAU SYNDROME
     Dosage: IN THE RIGHT EYE (OD)
     Route: 031
  3. METHOTREXATE. [Suspect]
     Active Substance: METHOTREXATE
     Indication: BLAU SYNDROME
     Dosage: UNK
     Route: 065
  4. METHYLPREDNISOLONE. [Suspect]
     Active Substance: METHYLPREDNISOLONE
     Indication: BLAU SYNDROME
     Dosage: PULSE THERAPY
     Route: 065
  5. MYCOPHENOLATE [Concomitant]
     Active Substance: MYCOPHENOLIC ACID
     Indication: IMMUNOSUPPRESSANT DRUG THERAPY
     Dosage: UNK
     Route: 065
  6. PREDNISONE. [Suspect]
     Active Substance: PREDNISONE
     Indication: BLAU SYNDROME
     Dosage: UNK
     Route: 048
  7. OZURDEX [Suspect]
     Active Substance: DEXAMETHASONE
     Indication: BLAU SYNDROME
     Dosage: IN LEFT EYE (OS)
     Route: 057

REACTIONS (4)
  - Cataract subcapsular [Unknown]
  - Macular oedema [Unknown]
  - Iris adhesions [Unknown]
  - Ocular hypertension [Unknown]
